FAERS Safety Report 16269109 (Version 2)
Quarter: 2019Q4

REPORT INFORMATION
  Report Type: Spontaneous
  Country: CN (occurrence: CN)
  Receive Date: 20190503
  Receipt Date: 20191119
  Transmission Date: 20200122
  Serious: Yes (Hospitalization)
  Sender: FDA-Public Use
  Company Number: CN-ASTRAZENECA-2019SE65006

PATIENT
  Age: 20 Year
  Sex: Female
  Weight: 58.1 kg

DRUGS (2)
  1. BASALIN [Concomitant]
     Active Substance: INSULIN GLARGINE
     Indication: HYPOGLYCAEMIA
     Dates: start: 20190406
  2. DAPAGLIFLOZIN. [Suspect]
     Active Substance: DAPAGLIFLOZIN
     Indication: HYPOGLYCAEMIA
     Route: 048
     Dates: start: 20190406, end: 20190411

REACTIONS (1)
  - Diabetic ketoacidosis [Recovering/Resolving]
